FAERS Safety Report 21663965 (Version 1)
Quarter: 2022Q4

REPORT INFORMATION
  Report Type: Report from Study
  Country: PR (occurrence: PR)
  Receive Date: 20221130
  Receipt Date: 20221130
  Transmission Date: 20230113
  Serious: No
  Sender: FDA-Public Use
  Company Number: PR-ABBVIE-4166462

PATIENT
  Sex: Female
  Weight: 72.574 kg

DRUGS (5)
  1. HUMIRA [Suspect]
     Active Substance: ADALIMUMAB
     Indication: Psoriasis
     Dosage: 40MG/0.8ML
     Route: 058
     Dates: start: 20140601
  2. HUMIRA [Suspect]
     Active Substance: ADALIMUMAB
     Dosage: 40MG/0.4ML
     Route: 058
  3. BENADRYL [Concomitant]
     Active Substance: DIPHENHYDRAMINE HYDROCHLORIDE
     Indication: Erythema
  4. HYDROCORTISONE [Concomitant]
     Active Substance: HYDROCORTISONE
     Indication: Erythema
  5. Covid-19 vaccine [Concomitant]
     Indication: COVID-19 immunisation
     Route: 030

REACTIONS (7)
  - COVID-19 [Recovered/Resolved]
  - Erythema [Not Recovered/Not Resolved]
  - Pain [Recovered/Resolved]
  - Unevaluable event [Recovered/Resolved]
  - Pruritus [Not Recovered/Not Resolved]
  - Sinusitis [Recovered/Resolved]
  - Dermatitis [Not Recovered/Not Resolved]

NARRATIVE: CASE EVENT DATE: 20220801
